FAERS Safety Report 20182945 (Version 1)
Quarter: 2021Q4

REPORT INFORMATION
  Report Type: Spontaneous
  Country: US (occurrence: None)
  Receive Date: 20211211
  Receipt Date: 20211211
  Transmission Date: 20220303
  Serious: Yes (Other)
  Sender: FDA-Public Use
  Company Number: None

PATIENT
  Age: 43 Year

DRUGS (1)
  1. MIAMI CARRY ON WIPES [Suspect]
     Active Substance: ALCOHOL
     Indication: Antibiotic prophylaxis
     Dosage: FREQUENCY : AS NEEDED;?
     Route: 061
     Dates: start: 20211210, end: 20211210

REACTIONS (6)
  - Cough [None]
  - Chest discomfort [None]
  - Dyspnoea [None]
  - Rash [None]
  - Application site pain [None]
  - Product odour abnormal [None]

NARRATIVE: CASE EVENT DATE: 20211210
